FAERS Safety Report 18326793 (Version 2)
Quarter: 2020Q4

REPORT INFORMATION
  Report Type: Spontaneous
  Country: GB (occurrence: GB)
  Receive Date: 20200929
  Receipt Date: 20201008
  Transmission Date: 20210113
  Serious: Yes (Hospitalization)
  Sender: FDA-Public Use
  Company Number: NVSC2020GB258115

PATIENT
  Age: 47 Year
  Sex: Male
  Weight: 74 kg

DRUGS (13)
  1. INVIRASE [Suspect]
     Active Substance: SAQUINAVIR MESYLATE
     Indication: ACQUIRED IMMUNODEFICIENCY SYNDROME
     Dosage: 1800 MG, UNKNOWN
     Route: 065
     Dates: start: 19970304, end: 19970603
  2. ZERIT [Suspect]
     Active Substance: STAVUDINE
     Indication: ACQUIRED IMMUNODEFICIENCY SYNDROME
     Dosage: 80 MG, UNKNOWN
     Route: 065
     Dates: start: 19970304, end: 19970603
  3. INVIRASE [Suspect]
     Active Substance: SAQUINAVIR MESYLATE
     Dosage: 1800 MG, UNKNOWN
     Route: 065
     Dates: start: 19970605
  4. OFLOXACIN. [Suspect]
     Active Substance: OFLOXACIN
     Indication: ACQUIRED IMMUNODEFICIENCY SYNDROME
     Dosage: 800 MG, UNKNOWN
     Route: 048
     Dates: start: 19970529, end: 19970602
  5. CLARITHROMYCIN. [Suspect]
     Active Substance: CLARITHROMYCIN
     Indication: TUBERCULOSIS
     Dosage: 1000 MG, UNKNOWN
     Route: 048
     Dates: start: 19970529
  6. LAMIVUDINE. [Suspect]
     Active Substance: LAMIVUDINE
     Dosage: 300 MG, UNKNOWN
     Route: 065
     Dates: start: 19970605
  7. ETHAMBUTOL [Suspect]
     Active Substance: ETHAMBUTOL HYDROCHLORIDE
     Indication: TUBERCULOSIS
     Dosage: 0.8 G, UNKNOWN
     Route: 048
     Dates: start: 19970530, end: 19970603
  8. ZERIT [Suspect]
     Active Substance: STAVUDINE
     Dosage: 80 MG, UNKNOWN
     Route: 065
     Dates: start: 19970605
  9. STREPTOMYCIN [Suspect]
     Active Substance: STREPTOMYCIN SULFATE
     Indication: TUBERCULOSIS
     Dosage: UNK
     Route: 030
     Dates: start: 19970530, end: 19970602
  10. LAMIVUDINE. [Suspect]
     Active Substance: LAMIVUDINE
     Indication: ACQUIRED IMMUNODEFICIENCY SYNDROME
     Dosage: 300 MG, UNKNOWN
     Route: 065
     Dates: start: 19970304, end: 19970603
  11. SEPTRIN FORTE [Suspect]
     Active Substance: SULFAMETHOXAZOLE\TRIMETHOPRIM
     Dosage: 480 MG, UNKNOWN
     Route: 065
     Dates: start: 19970605
  12. PROTHIONAMIDE [Suspect]
     Active Substance: PROTIONAMIDE
     Indication: PRODUCT USED FOR UNKNOWN INDICATION
     Dosage: 250 MG, UNKNOWN
     Route: 048
     Dates: start: 19970529, end: 19970530
  13. SEPTRIN FORTE [Suspect]
     Active Substance: SULFAMETHOXAZOLE\TRIMETHOPRIM
     Indication: ACQUIRED IMMUNODEFICIENCY SYNDROME
     Dosage: 480 MG, UNKNOWN
     Route: 065
     Dates: end: 19970603

REACTIONS (6)
  - Renal failure [Recovered/Resolved]
  - Purpura [Recovering/Resolving]
  - Malaise [Unknown]
  - Hepatosplenomegaly [Unknown]
  - Pyrexia [Unknown]
  - Cough [Unknown]

NARRATIVE: CASE EVENT DATE: 19970502
